FAERS Safety Report 8616282-6 (Version None)
Quarter: 2012Q3

REPORT INFORMATION
  Report Type: 
  Country: None (occurrence: None)
  Receive Date: 20120823
  Receipt Date: 20120815
  Transmission Date: 20120928
  Serious: Yes (Hospitalization, Other)
  Sender: FDA-Public Use
  Company Number: US-009507513-1105USA02132

PATIENT

DRUGS (5)
  1. CYANOCOBALAMIN [Concomitant]
     Dates: start: 19700101
  2. FOSAMAX [Suspect]
     Indication: OSTEOPOROSIS
     Dosage: 35 MG, UNK
     Route: 048
     Dates: start: 20031020, end: 20040617
  3. FOSAMAX [Suspect]
     Indication: OSTEOPENIA
     Dosage: 70 MG, UNK
     Route: 048
     Dates: start: 20040804, end: 20080213
  4. CALCIUM (UNSPECIFIED) [Concomitant]
     Dosage: UNK MG, UNK
     Dates: start: 19800101
  5. NEXIUM [Concomitant]
     Dates: start: 20030101, end: 20060101

REACTIONS (20)
  - BURSITIS [None]
  - INTERVERTEBRAL DISC DEGENERATION [None]
  - SPINAL COLUMN STENOSIS [None]
  - ARTHRALGIA [None]
  - SPINAL DISORDER [None]
  - TACHYCARDIA PAROXYSMAL [None]
  - BACK PAIN [None]
  - DIVERTICULITIS [None]
  - FEMUR FRACTURE [None]
  - LOW TURNOVER OSTEOPATHY [None]
  - IMPAIRED HEALING [None]
  - CHEST PAIN [None]
  - RADICULOPATHY [None]
  - SPONDYLOLISTHESIS [None]
  - INTERVERTEBRAL DISC PROTRUSION [None]
  - BONE PAIN [None]
  - NON-CARDIAC CHEST PAIN [None]
  - VITAMIN D DEFICIENCY [None]
  - FATIGUE [None]
  - HYPERTRIGLYCERIDAEMIA [None]
